FAERS Safety Report 4778364-9 (Version None)
Quarter: 2005Q3

REPORT INFORMATION
  Report Type: 
  Country: None (occurrence: None)
  Receive Date: 20050922
  Receipt Date: 20050906
  Transmission Date: 20060218
  Serious: Yes (Hospitalization)
  Sender: FDA-Public Use
  Company Number: US-2005-007208

PATIENT
  Age: 55 Year
  Sex: Female
  Weight: 68.9 kg

DRUGS (5)
  1. BETASERON [Suspect]
     Indication: RELAPSING-REMITTING MULTIPLE SCLEROSIS
     Dosage: 8 MIU, EVERY 2D, SUBCUTANEOUS
     Route: 058
     Dates: start: 19971012
  2. BACLOFEN [Concomitant]
  3. EFFEXOR [Concomitant]
  4. TOPROL-XL [Concomitant]
  5. TYLENOL (CAPLET) [Concomitant]

REACTIONS (13)
  - ABDOMINAL DISTENSION [None]
  - ABDOMINAL PAIN [None]
  - ABDOMINAL RIGIDITY [None]
  - ABDOMINAL TENDERNESS [None]
  - APPENDICITIS PERFORATED [None]
  - CHILLS [None]
  - DIARRHOEA [None]
  - HAEMATOCHEZIA [None]
  - HAEMORRHOIDS [None]
  - NAUSEA [None]
  - PAIN [None]
  - PELVIC ABSCESS [None]
  - VOMITING [None]
